FAERS Safety Report 10767168 (Version 1)
Quarter: 2015Q1

REPORT INFORMATION
  Report Type: Spontaneous
  Country: US (occurrence: US)
  Receive Date: 20150205
  Receipt Date: 20150205
  Transmission Date: 20150721
  Serious: Yes (Death)
  Sender: FDA-Public Use
  Company Number: US-PERRIGO-15US001407

PATIENT
  Age: 39 Year
  Sex: Female

DRUGS (5)
  1. IMIPRAMINE [Suspect]
     Active Substance: IMIPRAMINE
     Indication: DRUG ABUSE
     Dosage: UNKNOWN, UNKNOWN
     Route: 065
  2. MORPHINE SULFATE 20 MG/ML 0L8 [Suspect]
     Active Substance: MORPHINE SULFATE
     Indication: DRUG ABUSE
     Dosage: UNKNOWN, UNKNOWN
     Route: 065
  3. DIAZEPAM. [Suspect]
     Active Substance: DIAZEPAM
     Indication: DRUG ABUSE
     Dosage: UNKNOWN, UNKNOWN
     Route: 065
  4. PHENTERMINE [Suspect]
     Active Substance: PHENTERMINE
     Indication: DRUG ABUSE
     Dosage: UNKNOWN, UNKNOWN
     Route: 065
  5. FENTANYL. [Suspect]
     Active Substance: FENTANYL
     Indication: DRUG ABUSE
     Dosage: UNKNOWN, UNKNOWN
     Route: 065

REACTIONS (2)
  - Drug abuse [None]
  - Death [Fatal]
